FAERS Safety Report 5887022-9 (Version None)
Quarter: 2008Q3

REPORT INFORMATION
  Report Type: 
  Country: None (occurrence: None)
  Receive Date: 20080915
  Receipt Date: 20080908
  Transmission Date: 20090109
  Serious: Yes (Other)
  Sender: FDA-Public Use
  Company Number: ADE2008-0286

PATIENT
  Age: 53 Year
  Sex: Male

DRUGS (2)
  1. SERTRALINE [Suspect]
     Indication: MAJOR DEPRESSION
     Dosage: 100MG - DAILY -
  2. NAPROXEN [Suspect]
     Dosage: 500MG-TWICE DAILY-

REACTIONS (7)
  - DYSPNOEA [None]
  - HAEMORRHAGE [None]
  - LIP AND/OR ORAL CAVITY CANCER [None]
  - MOUTH ULCERATION [None]
  - ORAL DISORDER [None]
  - POST PROCEDURAL HAEMATOMA [None]
  - UPPER AIRWAY OBSTRUCTION [None]
